FAERS Safety Report 19985083 (Version 1)
Quarter: 2021Q4

REPORT INFORMATION
  Report Type: Spontaneous
  Country: CN (occurrence: CN)
  Receive Date: 20211022
  Receipt Date: 20211022
  Transmission Date: 20220303
  Serious: Yes (Hospitalization)
  Sender: FDA-Public Use
  Company Number: CN-BOEHRINGERINGELHEIM-2021-BI-132241

PATIENT
  Age: 56 Year
  Sex: Male
  Weight: 67.5 kg

DRUGS (3)
  1. ALTEPLASE [Suspect]
     Active Substance: ALTEPLASE
     Indication: Vascular access complication
     Dosage: ROUTE OF ADMINISTRATION: INTRA-PUMP INJECTION
     Route: 042
     Dates: start: 20211003, end: 20211003
  2. ALTEPLASE [Suspect]
     Active Substance: ALTEPLASE
     Indication: Thrombolysis
  3. SODIUM CHLORIDE [Concomitant]
     Active Substance: SODIUM CHLORIDE
     Indication: Drug therapy
     Dosage: ROUTE OF ADMINISTRATION: INTRA-PUMP INJECTION
     Route: 042
     Dates: start: 20211003, end: 20211003

REACTIONS (2)
  - Gingival bleeding [Recovering/Resolving]
  - Coagulopathy [Recovering/Resolving]

NARRATIVE: CASE EVENT DATE: 20211003
